FAERS Safety Report 10089561 (Version 1)
Quarter: 2014Q2

REPORT INFORMATION
  Report Type: Spontaneous
  Country: US (occurrence: None)
  Receive Date: 20140418
  Receipt Date: 20140418
  Transmission Date: 20141212
  Serious: Yes (Hospitalization)
  Sender: FDA-Public Use
  Company Number: None

PATIENT
  Age: 66 Year
  Sex: Female
  Weight: 94.3 kg

DRUGS (15)
  1. CYTARABINE [Suspect]
     Dates: end: 20140326
  2. ACYCLOVIR [Concomitant]
  3. ARIMIDEX [Concomitant]
  4. CIPRO [Concomitant]
  5. CYMBALTA [Concomitant]
  6. HUMALOG INSULIN [Concomitant]
  7. LANTUS INSULIN [Concomitant]
  8. METFORMIN [Concomitant]
  9. NORVASC [Concomitant]
  10. SYNTHROID [Concomitant]
  11. TOPROL XL [Concomitant]
  12. VOLTAREN [Concomitant]
  13. VYTORIN [Concomitant]
  14. ZOSYN [Concomitant]
  15. VANCOMYCIN [Concomitant]

REACTIONS (11)
  - Pyrexia [None]
  - Tachycardia [None]
  - Dizziness [None]
  - Hyperhidrosis [None]
  - Dehydration [None]
  - Bacterial test positive [None]
  - Respiratory disorder [None]
  - Diarrhoea [None]
  - Weaning failure [None]
  - Lung consolidation [None]
  - Flushing [None]
